FAERS Safety Report 4437099-2 (Version None)
Quarter: 2004Q3

REPORT INFORMATION
  Report Type: 
  Country: None (occurrence: None)
  Receive Date: 20040827
  Receipt Date: 20040817
  Transmission Date: 20050211
  Serious: Yes (Hospitalization)
  Sender: FDA-Public Use
  Company Number: 04P-163-0254501-00

PATIENT
  Age: 41 Year
  Sex: Male

DRUGS (26)
  1. NORVIR [Suspect]
     Indication: HIV INFECTION
     Dosage: PER ORAL
     Route: 048
     Dates: start: 20030708
  2. DIDANOSINE [Concomitant]
  3. LAMIVUDINE [Concomitant]
  4. TENOFOVIR [Concomitant]
  5. TESTOSTERONE [Concomitant]
  6. BUPROPION HYDROCHLORIDE [Concomitant]
  7. METHYLPHENIDATE HCL [Concomitant]
  8. BACTRIM [Concomitant]
  9. SOMATROPIN [Concomitant]
  10. ANDRODERM [Concomitant]
  11. GLUCOSAMINE W/CHONDROITIN SULFATES [Concomitant]
  12. TIPRANAVIR [Concomitant]
  13. ACYCLOVIR [Concomitant]
  14. IBUPROFEN [Concomitant]
  15. CLOBETASOL PROPIONATE [Concomitant]
  16. L-ARGININE [Concomitant]
  17. L-CARNITINE [Concomitant]
  18. TOCOPHEROL CONCENTRATE CAP [Concomitant]
  19. MULTI-VITAMINS [Concomitant]
  20. LYSINE [Concomitant]
  21. B-KOMPLEX ^LECIVA^ [Concomitant]
  22. ASCORBIC ACID [Concomitant]
  23. CHINESE HERBS [Concomitant]
  24. PRASTERONE [Concomitant]
  25. ZINC PICOLINATE [Concomitant]
  26. DAPSONE [Concomitant]

REACTIONS (23)
  - ABDOMINAL PAIN [None]
  - BLOOD LACTATE DEHYDROGENASE INCREASED [None]
  - CONFUSIONAL STATE [None]
  - CRYPTOGENIC ORGANIZING PNEUMONIA [None]
  - DELUSION [None]
  - FUNGAL INFECTION [None]
  - GRANULOMA [None]
  - INSOMNIA [None]
  - INTERSTITIAL LUNG DISEASE [None]
  - LEUKOPENIA [None]
  - LYMPHOCYTOSIS [None]
  - MENTAL DISORDER [None]
  - MYCOBACTERIAL INFECTION [None]
  - NAUSEA [None]
  - NECROSIS [None]
  - NODULE [None]
  - OPPORTUNISTIC INFECTION [None]
  - PLEURAL FIBROSIS [None]
  - PNEUMOCYSTIS CARINII INFECTION [None]
  - PNEUMONIA BACTERIAL [None]
  - TRANSAMINASES INCREASED [None]
  - VISION BLURRED [None]
  - VOMITING [None]
